FAERS Safety Report 8487122-3 (Version None)
Quarter: 2012Q3

REPORT INFORMATION
  Report Type: 
  Country: None (occurrence: None)
  Receive Date: 20120704
  Receipt Date: 20120702
  Transmission Date: 20120928
  Serious: Yes (Hospitalization, Other)
  Sender: FDA-Public Use
  Company Number: PHHY2012AR057059

PATIENT
  Sex: Female

DRUGS (1)
  1. DIOVAN [Suspect]
     Indication: HYPERTENSION
     Dosage: 0.5 TABLET (160 MG) DAILY

REACTIONS (3)
  - SINGLE FUNCTIONAL KIDNEY [None]
  - RENAL CANCER [None]
  - WRONG TECHNIQUE IN DRUG USAGE PROCESS [None]
